FAERS Safety Report 9548463 (Version 1)
Quarter: 2013Q3

REPORT INFORMATION
  Report Type: Spontaneous
  Country: US (occurrence: US)
  Receive Date: 20130924
  Receipt Date: 20130924
  Transmission Date: 20140515
  Serious: Yes (Hospitalization)
  Sender: FDA-Public Use
  Company Number: US-PFIZER INC-2013270866

PATIENT
  Age: 77 Year
  Sex: Female
  Weight: 47.62 kg

DRUGS (1)
  1. VFEND [Suspect]
     Indication: ANTIFUNGAL TREATMENT
     Dosage: 200 MG, 2X/DAY
     Route: 048
     Dates: start: 201309, end: 201309

REACTIONS (1)
  - Convulsion [Unknown]
